FAERS Safety Report 6027377-8 (Version None)
Quarter: 2009Q1

REPORT INFORMATION
  Report Type: 
  Country: None (occurrence: None)
  Receive Date: 20090105
  Receipt Date: 20081223
  Transmission Date: 20090719
  Serious: Yes (Other)
  Sender: FDA-Public Use
  Company Number: D0060009A

PATIENT
  Age: 73 Year
  Sex: Male
  Weight: 70.2 kg

DRUGS (11)
  1. AUGMENTIN '125' [Suspect]
     Indication: RESPIRATORY TRACT INFECTION
     Route: 065
  2. MONOCLONAL ANTIBODY [Concomitant]
     Indication: PAROXYSMAL NOCTURNAL HAEMOGLOBINURIA
     Route: 042
     Dates: start: 20070901, end: 20080101
  3. METOPROLOL [Concomitant]
     Route: 065
     Dates: start: 20010101
  4. FUROSEMID [Concomitant]
     Route: 065
     Dates: start: 20010101
  5. MENINGOCOCCAL VACCINE [Concomitant]
     Indication: PROPHYLAXIS
     Route: 065
     Dates: start: 20070817, end: 20070817
  6. MARCUMAR [Concomitant]
     Route: 065
     Dates: start: 19830101
  7. HEPARIN [Concomitant]
     Route: 065
  8. ENALAPRIL MALEATE [Concomitant]
     Route: 065
     Dates: start: 20080801
  9. TAMSULOSIN HCL [Concomitant]
     Route: 065
     Dates: start: 20080801
  10. DECORTIN [Concomitant]
     Route: 065
     Dates: start: 20080904
  11. CIPROFLOXACIN [Concomitant]
     Route: 065
     Dates: start: 20081104, end: 20081104

REACTIONS (3)
  - HAEMOLYSIS [None]
  - NEUTROPENIA [None]
  - RASH [None]
